FAERS Safety Report 8492188-0 (Version None)
Quarter: 2012Q3

REPORT INFORMATION
  Report Type: 
  Country: None (occurrence: None)
  Receive Date: 20120706
  Receipt Date: 20120702
  Transmission Date: 20120928
  Serious: No
  Sender: FDA-Public Use
  Company Number: US-PFIZER INC-2012159490

PATIENT
  Sex: Female

DRUGS (1)
  1. CAMPTOSAR [Suspect]
     Indication: METASTASES TO LIVER
     Dosage: 300 MG, UNK
     Dates: start: 20110425, end: 20120608

REACTIONS (2)
  - DISEASE PROGRESSION [None]
  - METASTASES TO LIVER [None]
